FAERS Safety Report 5096686-1 (Version None)
Quarter: 2006Q3

REPORT INFORMATION
  Report Type: 
  Country: None (occurrence: None)
  Receive Date: 20060831
  Receipt Date: 20060821
  Transmission Date: 20061208
  Serious: Yes (Other)
  Sender: FDA-Public Use
  Company Number: BE-2006-013575

PATIENT
  Age: 49 Year
  Sex: Female

DRUGS (1)
  1. MIRENA [Suspect]
     Dosage: 20 UG/DAY, CONT, INTRA-UTERINE
     Route: 015

REACTIONS (6)
  - ENDOMETRIAL CANCER [None]
  - ENDOMETRIAL HYPERTROPHY [None]
  - OVARIAN CYST [None]
  - SALPINGITIS [None]
  - TUMOUR NECROSIS [None]
  - UTERINE LEIOMYOMA [None]
